FAERS Safety Report 10680343 (Version 3)
Quarter: 2017Q2

REPORT INFORMATION
  Report Type: Spontaneous
  Country: US (occurrence: US)
  Receive Date: 20141229
  Receipt Date: 20170505
  Transmission Date: 20170829
  Serious: Yes (Death, Other)
  Sender: FDA-Public Use
  Company Number: US-SA-2013SA132515

PATIENT
  Age: 84 Year
  Sex: Male

DRUGS (3)
  1. ASPIRIN. [Concomitant]
     Active Substance: ASPIRIN
  2. PLAVIX [Suspect]
     Active Substance: CLOPIDOGREL BISULFATE
     Indication: MYOCARDIAL INFARCTION
     Route: 065
     Dates: start: 2000, end: 200607
  3. COUMADIN [Concomitant]
     Active Substance: WARFARIN SODIUM

REACTIONS (5)
  - Gastrointestinal haemorrhage [Unknown]
  - Haematoma [Unknown]
  - Death [Fatal]
  - Cerebral haemorrhage [Unknown]
  - Amnesia [Unknown]

NARRATIVE: CASE EVENT DATE: 2006
